FAERS Safety Report 12521487 (Version 1)
Quarter: 2016Q3

REPORT INFORMATION
  Report Type: Report from Study
  Country: US (occurrence: US)
  Receive Date: 20160701
  Receipt Date: 20160701
  Transmission Date: 20161109
  Serious: Yes (Hospitalization)
  Sender: FDA-Public Use
  Company Number: US-ACTELION-A-US2016-138463

PATIENT
  Age: 65 Year
  Sex: Male

DRUGS (8)
  1. LEVOTHYROXINE. [Concomitant]
     Active Substance: LEVOTHYROXINE
  2. REMODULIN [Concomitant]
     Active Substance: TREPROSTINIL
  3. CIPRO [Concomitant]
     Active Substance: CIPROFLOXACIN HYDROCHLORIDE
  4. FUROSEMIDE. [Concomitant]
     Active Substance: FUROSEMIDE
  5. TYLENOL [Concomitant]
     Active Substance: ACETAMINOPHEN
  6. CARVEDILOL. [Concomitant]
     Active Substance: CARVEDILOL
  7. OPSUMIT [Suspect]
     Active Substance: MACITENTAN
     Indication: PRODUCT USED FOR UNKNOWN INDICATION
     Dosage: 10 MG, UNK
     Route: 048
     Dates: start: 20140626
  8. ADCIRCA [Concomitant]
     Active Substance: TADALAFIL

REACTIONS (4)
  - Cerebrovascular accident [Unknown]
  - Respiratory failure [Unknown]
  - Sepsis [Unknown]
  - Seizure [Unknown]
